FAERS Safety Report 5671037-X (Version None)
Quarter: 2008Q1

REPORT INFORMATION
  Report Type: 
  Country: None (occurrence: None)
  Receive Date: 20080318
  Receipt Date: 20080312
  Transmission Date: 20080703
  Serious: Yes (Other)
  Sender: FDA-Public Use
  Company Number: GB-ASTRAZENECA-2008GB00485

PATIENT
  Age: 86 Year
  Sex: Female

DRUGS (15)
  1. QUETIAPINE FUMARATE [Suspect]
     Indication: AGITATION
     Route: 048
     Dates: start: 20080214, end: 20080227
  2. ASPIRIN [Concomitant]
     Indication: CEREBROVASCULAR ACCIDENT
     Route: 048
     Dates: end: 20080221
  3. BETAMETHASONE [Concomitant]
     Route: 061
  4. CANDESARTAN CILEXETIL [Concomitant]
  5. CLEXANE [Concomitant]
     Route: 058
     Dates: start: 20080102, end: 20080111
  6. DONEPEZIL HCL [Concomitant]
     Indication: DEMENTIA
     Route: 048
     Dates: start: 20080207, end: 20080214
  7. FERROUS FUMARATE [Concomitant]
     Indication: SERUM FERRITIN DECREASED
     Route: 048
     Dates: start: 20080204, end: 20080220
  8. HALOPERIDOL [Concomitant]
  9. LANSOPRAZOLE [Concomitant]
     Indication: STOMACH DISCOMFORT
     Route: 048
     Dates: start: 20080121
  10. LORAZEPAM [Concomitant]
     Indication: AGITATION
     Route: 048
     Dates: start: 20071111, end: 20080218
  11. OLIVE OIL [Concomitant]
     Indication: CERUMEN IMPACTION
     Route: 061
     Dates: start: 20080128
  12. SENNA [Concomitant]
     Indication: ABDOMINAL DISCOMFORT
     Route: 048
     Dates: start: 20080111
  13. SIMVASTATIN [Concomitant]
     Route: 048
  14. TRAZODONE HCL [Concomitant]
     Indication: AGITATION
     Route: 048
     Dates: start: 20080218, end: 20080226
  15. ZOPICLONE [Concomitant]
     Indication: INSOMNIA
     Route: 048
     Dates: start: 20080111

REACTIONS (2)
  - HAEMOGLOBIN DECREASED [None]
  - NEUTROPENIA [None]
